FAERS Safety Report 14942388 (Version 1)
Quarter: 2018Q2

REPORT INFORMATION
  Report Type: Spontaneous
  Country: FR (occurrence: FR)
  Receive Date: 20180528
  Receipt Date: 20180528
  Transmission Date: 20180711
  Serious: Yes (Other)
  Sender: FDA-Public Use
  Company Number: FR-MERCK KGAA-2048514

PATIENT
  Age: 69 Year
  Sex: Female
  Weight: 65 kg

DRUGS (1)
  1. NOVOTHYROX [Suspect]
     Active Substance: LEVOTHYROXINE SODIUM
     Indication: POST PROCEDURAL HYPOTHYROIDISM
     Dates: start: 201707

REACTIONS (36)
  - Pneumonia [None]
  - Emotional distress [None]
  - Asocial behaviour [None]
  - Balance disorder [None]
  - Cough [None]
  - Disturbance in attention [None]
  - Irritability [None]
  - Loss of personal independence in daily activities [None]
  - Myalgia [Recovering/Resolving]
  - Weight increased [None]
  - Decreased interest [None]
  - Pain [None]
  - Mean cell volume abnormal [None]
  - Blood thyroid stimulating hormone increased [None]
  - Gamma-glutamyltransferase increased [Recovering/Resolving]
  - Vertigo [None]
  - Confusional state [None]
  - Social avoidant behaviour [None]
  - Insomnia [None]
  - Muscle spasms [None]
  - Bronchopneumopathy [None]
  - Dyspnoea [None]
  - Impaired work ability [None]
  - Haematocrit decreased [None]
  - Headache [None]
  - Vomiting [None]
  - Hypotension [None]
  - Asthenia [Recovering/Resolving]
  - Pyrexia [None]
  - Fatigue [None]
  - Feeling abnormal [None]
  - Chest pain [None]
  - Sleep disorder [Recovering/Resolving]
  - Secretion discharge [None]
  - Personal relationship issue [None]
  - Nausea [None]

NARRATIVE: CASE EVENT DATE: 2017
